FAERS Safety Report 6832758-6 (Version None)
Quarter: 2010Q3

REPORT INFORMATION
  Report Type: 
  Country: None (occurrence: None)
  Receive Date: 20100712
  Receipt Date: 20070320
  Transmission Date: 20110219
  Serious: Yes (Other)
  Sender: FDA-Public Use
  Company Number: US-PFIZER INC-2007024242

PATIENT
  Sex: Male
  Weight: 93 kg

DRUGS (6)
  1. CHANTIX [Suspect]
     Indication: SMOKING CESSATION THERAPY
     Route: 048
     Dates: start: 20070311
  2. VYTORIN [Concomitant]
     Route: 048
  3. ATENOLOL [Concomitant]
     Route: 048
  4. ACETYLSALICYLIC ACID [Concomitant]
     Route: 048
  5. NEXIUM [Concomitant]
     Route: 048
  6. NORCO [Concomitant]
     Route: 048

REACTIONS (4)
  - CHEST PAIN [None]
  - HEART RATE DECREASED [None]
  - HYPERTENSION [None]
  - PYREXIA [None]
